FAERS Safety Report 5411570-9 (Version None)
Quarter: 2007Q3

REPORT INFORMATION
  Report Type: 
  Country: None (occurrence: None)
  Receive Date: 20070810
  Receipt Date: 20070731
  Transmission Date: 20080115
  Serious: Yes (Hospitalization, Disabling, Other)
  Sender: FDA-Public Use
  Company Number: JP-PFIZER INC-2007061028

PATIENT
  Age: 79 Year
  Sex: Male

DRUGS (7)
  1. VFEND [Suspect]
     Indication: EYE INFECTION FUNGAL
     Route: 048
     Dates: start: 20070719, end: 20070719
  2. PRODIF [Suspect]
     Dosage: DAILY DOSE:1009MG
     Route: 042
     Dates: start: 20070711, end: 20070712
  3. PRODIF [Suspect]
     Dosage: DAILY DOSE:504.5MG
     Route: 042
     Dates: start: 20070713, end: 20070718
  4. MICAFUNGIN [Concomitant]
     Route: 042
     Dates: start: 20070706, end: 20070710
  5. LEVOFLOXACIN [Concomitant]
  6. RINDERON [Concomitant]
  7. MYDRIN P [Concomitant]

REACTIONS (4)
  - FALL [None]
  - FEMUR FRACTURE [None]
  - VISUAL ACUITY REDUCED [None]
  - VOMITING [None]
